FAERS Safety Report 17259442 (Version 1)
Quarter: 2020Q1

REPORT INFORMATION
  Report Type: Spontaneous
  Country: DE (occurrence: DE)
  Receive Date: 20200110
  Receipt Date: 20200110
  Transmission Date: 20200409
  Serious: Yes (Hospitalization)
  Sender: FDA-Public Use
  Company Number: US-SLATE RUN PHARMACEUTICALS-SLTR-AE-20-3

PATIENT
  Age: 44 Year
  Sex: Female

DRUGS (5)
  1. AMPHOTERICIN B. [Concomitant]
     Active Substance: AMPHOTERICIN B
     Indication: FUNGAL INFECTION
  2. 70436-029-80 VORICONAZOLE FOR INJECTION DRY VIAL 200 MG [Suspect]
     Active Substance: VORICONAZOLE
     Indication: BRONCHOPULMONARY ASPERGILLOSIS
  3. HYDROCORTISONE. [Concomitant]
     Active Substance: HYDROCORTISONE
     Indication: IMMUNOSUPPRESSION
  4. COTRIMOXAZOLE [Concomitant]
     Active Substance: SULFAMETHOXAZOLE\TRIMETHOPRIM
  5. VALGANCICLOVIR. [Concomitant]
     Active Substance: VALGANCICLOVIR

REACTIONS (4)
  - Haemorrhage [Unknown]
  - Cytomegalovirus infection [Unknown]
  - Gastroenteritis [Unknown]
  - Acute kidney injury [Unknown]
